FAERS Safety Report 10412960 (Version 1)
Quarter: 2014Q2

REPORT INFORMATION
  Report Type: Spontaneous
  Country: US (occurrence: None)
  Receive Date: 20140530
  Receipt Date: 20140530
  Transmission Date: 20141212
  Serious: No
  Sender: FDA-Public Use
  Company Number: 226938

PATIENT
  Age: 68 Year
  Sex: Female

DRUGS (1)
  1. PICATO [Suspect]
     Indication: ACTINIC KERATOSIS
     Dates: start: 20140310, end: 20140312

REACTIONS (8)
  - Application site reaction [None]
  - Application site erythema [None]
  - Application site pain [None]
  - Application site swelling [None]
  - Application site exfoliation [None]
  - Application site pruritus [None]
  - Drug administered at inappropriate site [None]
  - Inappropriate schedule of drug administration [None]
